FAERS Safety Report 15723947 (Version 3)
Quarter: 2021Q2

REPORT INFORMATION
  Report Type: Spontaneous
  Country: US (occurrence: US)
  Receive Date: 20181214
  Receipt Date: 20210407
  Transmission Date: 20210716
  Serious: Yes (Other)
  Sender: FDA-Public Use
  Company Number: PHEH2018US052343

PATIENT
  Sex: Male
  Weight: 88 kg

DRUGS (2)
  1. TASIGNA [Suspect]
     Active Substance: NILOTINIB
     Indication: CHRONIC MYELOID LEUKAEMIA
     Dosage: UNK
     Route: 065
     Dates: start: 2011, end: 201212
  2. ICLUSIG [Suspect]
     Active Substance: PONATINIB
     Indication: CHRONIC MYELOID LEUKAEMIA
     Route: 065
     Dates: start: 201303, end: 201607

REACTIONS (28)
  - Prostate cancer [Unknown]
  - Transient ischaemic attack [Unknown]
  - Rectal haemorrhage [Unknown]
  - Sciatica [Unknown]
  - Hypertension [Unknown]
  - Chest pain [Unknown]
  - Tricuspid valve incompetence [Unknown]
  - Coronary artery disease [Unknown]
  - Left atrial enlargement [Unknown]
  - Aortic valve sclerosis [Unknown]
  - Injury [Unknown]
  - Renal artery stenosis [Unknown]
  - Second primary malignancy [Unknown]
  - Pain in extremity [Unknown]
  - Arteriosclerosis [Unknown]
  - Emotional distress [Unknown]
  - Peripheral arterial occlusive disease [Unknown]
  - Intervertebral disc degeneration [Unknown]
  - Peripheral ischaemia [Unknown]
  - Intermittent claudication [Unknown]
  - Peripheral vascular disorder [Unknown]
  - Left ventricular enlargement [Unknown]
  - Anxiety [Unknown]
  - Acute kidney injury [Unknown]
  - Pain [Unknown]
  - Mitral valve incompetence [Unknown]
  - Chronic kidney disease [Unknown]
  - Hyperlipidaemia [Unknown]

NARRATIVE: CASE EVENT DATE: 2013
